FAERS Safety Report 9169327 (Version 1)
Quarter: 2013Q1

REPORT INFORMATION
  Report Type: Spontaneous
  Country: US (occurrence: US)
  Receive Date: 20130318
  Receipt Date: 20130318
  Transmission Date: 20140127
  Serious: Yes (Life-Threatening, Other)
  Sender: FDA-Public Use
  Company Number: US-ROXANE LABORATORIES, INC.-2013-RO-00377RO

PATIENT
  Age: 47 Year
  Sex: Male

DRUGS (5)
  1. METHADONE [Suspect]
     Indication: DRUG DEPENDENCE
     Dosage: 30 MG
  2. AZITHROMYCIN [Suspect]
     Indication: UPPER RESPIRATORY TRACT INFECTION
  3. LISINOPRIL/HYDROCHLOROTHIAZIDE [Concomitant]
  4. BENZONATATE [Concomitant]
  5. COLD MEDICINE WITH ACETAMINOPHEN, DEXTROMETHORPHAN, DOXYLAMINE [Concomitant]

REACTIONS (6)
  - Cardiac arrest [Recovered/Resolved]
  - Electrocardiogram QT prolonged [Recovered/Resolved]
  - Sinus tachycardia [Unknown]
  - Lactic acidosis [Unknown]
  - Hyperammonaemia [Unknown]
  - Blood bicarbonate decreased [Unknown]
